FAERS Safety Report 6316776-2 (Version None)
Quarter: 2009Q3

REPORT INFORMATION
  Report Type: 
  Country: None (occurrence: None)
  Receive Date: 20090820
  Receipt Date: 20090625
  Transmission Date: 20100115
  Serious: Yes (Other)
  Sender: FDA-Public Use
  Company Number: RU-ELI_LILLY_AND_COMPANY-RU200802005514

PATIENT
  Sex: Female

DRUGS (3)
  1. LISPRO REGLISPRO [Suspect]
     Indication: TYPE 1 DIABETES MELLITUS
     Dosage: 38 IU, UNK
     Dates: start: 20070917, end: 20080204
  2. LISPRO NPL [Suspect]
     Indication: TYPE 1 DIABETES MELLITUS
     Dosage: 38 IU, 3/D
     Route: 065
     Dates: start: 20070917, end: 20080204
  3. VASILIP [Concomitant]
     Indication: HYPERLIPIDAEMIA
     Dosage: 10 MG, UNK
     Dates: start: 20070823, end: 20071014

REACTIONS (2)
  - ABORTION SPONTANEOUS [None]
  - DRUG EXPOSURE DURING PREGNANCY [None]
